FAERS Safety Report 5235220-X (Version None)
Quarter: 2007Q1

REPORT INFORMATION
  Report Type: 
  Country: None (occurrence: None)
  Receive Date: 20070208
  Receipt Date: 20070208
  Transmission Date: 20070707
  Serious: Yes (Other)
  Sender: FDA-Public Use
  Company Number: None

PATIENT
  Age: 47 Year
  Sex: Female
  Weight: 56.6996 kg

DRUGS (2)
  1. LEVOFLOXACIN [Suspect]
     Indication: SINUSITIS
     Dosage: 750 MG. 1 X A DAY PO
     Route: 048
     Dates: start: 20060530, end: 20060603
  2. LEVOFLOXACIN [Concomitant]

REACTIONS (46)
  - ANXIETY [None]
  - ARTHROPATHY [None]
  - ASTHENOPIA [None]
  - BACK PAIN [None]
  - COGNITIVE DISORDER [None]
  - CRYING [None]
  - DEPRESSION [None]
  - DIZZINESS [None]
  - DRY EYE [None]
  - DYSKINESIA [None]
  - DYSURIA [None]
  - EAR PAIN [None]
  - EYE IRRITATION [None]
  - FATIGUE [None]
  - FEELING ABNORMAL [None]
  - GASTRIC DISORDER [None]
  - HYPERACUSIS [None]
  - HYPOAESTHESIA [None]
  - HYPOTENSION [None]
  - INSOMNIA [None]
  - JOINT CREPITATION [None]
  - MEDIAL TIBIAL STRESS SYNDROME [None]
  - MEMORY IMPAIRMENT [None]
  - MUSCLE TWITCHING [None]
  - MUSCULAR WEAKNESS [None]
  - MUSCULOSKELETAL CHEST PAIN [None]
  - MUSCULOSKELETAL PAIN [None]
  - MUSCULOSKELETAL STIFFNESS [None]
  - NECK PAIN [None]
  - PAIN [None]
  - PAIN IN EXTREMITY [None]
  - PANIC ATTACK [None]
  - PARAESTHESIA [None]
  - PERIPHERAL COLDNESS [None]
  - POLLAKIURIA [None]
  - RASH [None]
  - RESPIRATORY DISORDER [None]
  - SINUS HEADACHE [None]
  - SKIN BURNING SENSATION [None]
  - TENDON PAIN [None]
  - TINNITUS [None]
  - URINE ABNORMALITY [None]
  - URTICARIA [None]
  - VISION BLURRED [None]
  - VITREOUS FLOATERS [None]
  - WEIGHT DECREASED [None]
